FAERS Safety Report 8214194-3 (Version None)
Quarter: 2012Q1

REPORT INFORMATION
  Report Type: 
  Country: None (occurrence: None)
  Receive Date: 20120316
  Receipt Date: 20120313
  Transmission Date: 20120608
  Serious: Yes (Death)
  Sender: FDA-Public Use
  Company Number: JP-PFIZER INC-2012066545

PATIENT
  Age: 64 Year
  Sex: Male
  Weight: 45.3 kg

DRUGS (11)
  1. MAGNESIUM OXIDE [Concomitant]
     Dosage: 250 MG, 3X/DAY
     Route: 048
  2. SUNITINIB MALATE [Suspect]
     Dosage: 25 MG, 1X/DAY
     Route: 048
     Dates: start: 20090821, end: 20100115
  3. SUNITINIB MALATE [Suspect]
     Dosage: 37.5 MG, 1X/DAY
     Route: 048
     Dates: start: 20100205, end: 20100507
  4. SUNITINIB MALATE [Suspect]
     Indication: METASTATIC RENAL CELL CARCINOMA
     Dosage: 50 MG, 1X/DAY
     Route: 048
     Dates: start: 20090807, end: 20090820
  5. NORVASC [Concomitant]
     Dosage: 5 MG, 1X/DAY
     Route: 048
  6. METHYCOBAL [Concomitant]
     Dosage: 500 UG, 3X/DAY
     Route: 048
  7. GABAPENTIN [Concomitant]
     Dosage: 200 MG, 3X/DAY
     Route: 048
  8. RABEPRAZOLE SODIUM [Concomitant]
     Dosage: 20 MG, 1X/DAY
     Route: 048
     Dates: start: 20100213
  9. MUCOSTA [Concomitant]
     Dosage: 100 MG, 3X/DAY
     Route: 048
     Dates: start: 20100213
  10. PROCHLORPERAZINE [Concomitant]
     Dosage: 5 MG, 2X/DAY
     Route: 048
  11. ADONA [Concomitant]
     Dosage: 30 MG, 3X/DAY
     Route: 048
     Dates: start: 20100213

REACTIONS (1)
  - DEATH [None]
